FAERS Safety Report 4637131-7 (Version None)
Quarter: 2005Q2

REPORT INFORMATION
  Report Type: 
  Country: None (occurrence: None)
  Receive Date: 20050325
  Receipt Date: 20050103
  Transmission Date: 20051028
  Serious: No
  Sender: FDA-Public Use
  Company Number: USA040875225

PATIENT
  Age: 49 Year
  Sex: Female
  Weight: 50 kg

DRUGS (9)
  1. FORTEO [Suspect]
     Indication: OSTEOPOROSIS
     Dosage: 20 UG DAY
     Dates: start: 20040401
  2. ALPRAZOLAM [Concomitant]
  3. PRILOSEC [Concomitant]
  4. TRAZODONE HCL [Concomitant]
  5. EFFEXOR [Concomitant]
  6. DEPAKOTE [Concomitant]
  7. VITAMINS [Concomitant]
  8. CALCIUM WITH VITAMIN D [Concomitant]
  9. MAGNESIUM (MAGNESIUM ASPARTATE) [Concomitant]

REACTIONS (9)
  - BONE DENSITY DECREASED [None]
  - DIZZINESS [None]
  - DRUG INEFFECTIVE [None]
  - HEART RATE INCREASED [None]
  - LETHARGY [None]
  - MUSCLE SPASMS [None]
  - MYALGIA [None]
  - PAIN IN EXTREMITY [None]
  - VISUAL DISTURBANCE [None]
